FAERS Safety Report 7590015-7 (Version None)
Quarter: 2011Q3

REPORT INFORMATION
  Report Type: 
  Country: None (occurrence: None)
  Receive Date: 20110705
  Receipt Date: 20110628
  Transmission Date: 20111222
  Serious: Yes (Hospitalization)
  Sender: FDA-Public Use
  Company Number: A0933919A

PATIENT
  Age: 66 Year
  Sex: Female
  Weight: 94 kg

DRUGS (10)
  1. DOCETAXEL [Suspect]
     Indication: BREAST CANCER
     Dosage: 75MGM2 EVERY 3 WEEKS
     Route: 042
     Dates: start: 20110221
  2. TRASTUZUMAB [Suspect]
     Indication: BREAST CANCER
     Route: 042
     Dates: start: 20110221
  3. AMBIEN [Concomitant]
  4. RADIOTHERAPY [Concomitant]
  5. VICODIN [Concomitant]
  6. ZOFRAN [Concomitant]
  7. CARBOPLATIN [Suspect]
     Indication: BREAST CANCER
     Route: 042
     Dates: start: 20110221
  8. NEUPOGEN [Concomitant]
  9. LAPATINIB [Suspect]
     Indication: BREAST CANCER
     Dosage: 750MG PER DAY
     Route: 048
     Dates: start: 20110221
  10. IMODIUM [Concomitant]

REACTIONS (2)
  - DIARRHOEA [None]
  - DEHYDRATION [None]
